FAERS Safety Report 6631448-2 (Version None)
Quarter: 2010Q1

REPORT INFORMATION
  Report Type: 
  Country: None (occurrence: None)
  Receive Date: 20100311
  Receipt Date: 20100311
  Transmission Date: 20100710
  Serious: No
  Sender: FDA-Public Use
  Company Number: None

PATIENT
  Age: 32 Year
  Sex: Female
  Weight: 79.3795 kg

DRUGS (2)
  1. TOPAMAX [Suspect]
     Indication: CEREBRAL CYST
     Dosage: 1 TABLET BY MOUTH TWICE DAILY TWO TIMES A DAY PO
     Route: 048
     Dates: start: 20081201, end: 20100228
  2. TOPAMAX [Suspect]
     Indication: MIGRAINE
     Dosage: 1 TABLET BY MOUTH TWICE DAILY TWO TIMES A DAY PO
     Route: 048
     Dates: start: 20081201, end: 20100228

REACTIONS (1)
  - RASH [None]
